FAERS Safety Report 8124098-2 (Version None)
Quarter: 2012Q1

REPORT INFORMATION
  Report Type: 
  Country: None (occurrence: None)
  Receive Date: 20120209
  Receipt Date: 20120203
  Transmission Date: 20120608
  Serious: No
  Sender: FDA-Public Use
  Company Number: US-PFIZER INC-2012030847

PATIENT
  Sex: Female
  Weight: 48.526 kg

DRUGS (6)
  1. EFFEXOR XR [Suspect]
     Dosage: 75 MG, EVERY TWO DAYS
  2. FISH OIL [Concomitant]
     Dosage: UNK
  3. EFFEXOR XR [Suspect]
     Dosage: 75 MG, ALTERNATE DAY
  4. EFFEXOR XR [Suspect]
     Indication: DEPRESSION
     Dosage: 75 MG, DAILY
  5. EFFEXOR [Suspect]
     Indication: DEPRESSION
     Dosage: 37.5 MG, DAILY
  6. EFFEXOR XR [Suspect]
     Dosage: UNK

REACTIONS (5)
  - DRUG INEFFECTIVE [None]
  - FEELING ABNORMAL [None]
  - MALAISE [None]
  - ABDOMINAL PAIN UPPER [None]
  - INFLUENZA LIKE ILLNESS [None]
